FAERS Safety Report 21935227 (Version 7)
Quarter: 2024Q3

REPORT INFORMATION
  Report Type: Report from Study
  Country: US (occurrence: US)
  Receive Date: 20230201
  Receipt Date: 20240909
  Transmission Date: 20241016
  Serious: Yes (Other)
  Sender: NOVARTIS
  Company Number: US-002147023-NVSC2023US017575

PATIENT
  Sex: Female

DRUGS (2)
  1. KESIMPTA [Suspect]
     Active Substance: OFATUMUMAB
     Indication: Product used for unknown indication
     Dosage: UNK
     Route: 065
     Dates: start: 20221208
  2. KESIMPTA [Suspect]
     Active Substance: OFATUMUMAB
     Dosage: UNK
     Route: 065
     Dates: start: 20230112

REACTIONS (6)
  - Neuropathy peripheral [Not Recovered/Not Resolved]
  - COVID-19 [Unknown]
  - Nasopharyngitis [Unknown]
  - Brain fog [Unknown]
  - Fatigue [Unknown]
  - Sensitivity to weather change [Unknown]
